FAERS Safety Report 9106894 (Version 4)
Quarter: 2013Q1

REPORT INFORMATION
  Report Type: Spontaneous
  Country: SK (occurrence: SK)
  Receive Date: 20130221
  Receipt Date: 20130326
  Transmission Date: 20140127
  Serious: Yes (Other)
  Sender: FDA-Public Use
  Company Number: SK-GLAXOSMITHKLINE-B0868229A

PATIENT
  Age: 40 Year
  Sex: Male

DRUGS (2)
  1. ALLI [Suspect]
     Indication: WEIGHT DECREASED
     Dosage: 1TAB PER DAY
     Route: 065
     Dates: start: 2012, end: 20120902
  2. VITAMINS [Concomitant]

REACTIONS (20)
  - Cerebrovascular accident [Recovering/Resolving]
  - Vitreous haemorrhage [Recovering/Resolving]
  - Blindness [Not Recovered/Not Resolved]
  - Retinal injury [Unknown]
  - Immunodeficiency [Unknown]
  - Vertigo [Unknown]
  - Vomiting [Unknown]
  - Balance disorder [Unknown]
  - Intraocular pressure increased [Unknown]
  - Blood pressure increased [Unknown]
  - Coagulopathy [Unknown]
  - Dizziness [Unknown]
  - Malaise [Unknown]
  - Photopsia [Unknown]
  - Insomnia [Unknown]
  - Decreased appetite [Unknown]
  - Visual impairment [Not Recovered/Not Resolved]
  - Mental disorder [Unknown]
  - Visual acuity reduced [Not Recovered/Not Resolved]
  - Diarrhoea [Unknown]
